FAERS Safety Report 25406135 (Version 1)
Quarter: 2025Q2

REPORT INFORMATION
  Report Type: Spontaneous
  Country: GB (occurrence: GB)
  Receive Date: 20250606
  Receipt Date: 20250606
  Transmission Date: 20250717
  Serious: Yes (Other)
  Sender: SANOFI AVENTIS
  Company Number: UM-DialogSolutions-SAAVPROD-PI780770-C1

PATIENT
  Age: 60 Year
  Sex: Female

DRUGS (2)
  1. ENOXAPARIN SODIUM [Suspect]
     Active Substance: ENOXAPARIN SODIUM
     Indication: Prophylaxis
  2. WARFARIN SODIUM [Suspect]
     Active Substance: WARFARIN SODIUM
     Dosage: 10 MG, QD

REACTIONS (14)
  - Pulmonary embolism [Recovering/Resolving]
  - Dyspnoea [Recovering/Resolving]
  - Thrombosis [Recovering/Resolving]
  - Hepatic vein thrombosis [Recovering/Resolving]
  - Adrenal insufficiency [Recovering/Resolving]
  - Adrenal infarction [Recovering/Resolving]
  - Hypotension [Recovering/Resolving]
  - Hyponatraemia [Unknown]
  - Heparin-induced thrombocytopenia [Recovering/Resolving]
  - Abdominal pain [Recovering/Resolving]
  - Vomiting [Recovering/Resolving]
  - Deep vein thrombosis [Unknown]
  - Pain in extremity [Unknown]
  - Swelling [Unknown]
